FAERS Safety Report 12894900 (Version 1)
Quarter: 2016Q4

REPORT INFORMATION
  Report Type: Spontaneous
  Country: RU (occurrence: RU)
  Receive Date: 20161028
  Receipt Date: 20161028
  Transmission Date: 20170207
  Serious: Yes (Hospitalization)
  Sender: FDA-Public Use
  Company Number: RU-ASTRAZENECA-2016SF11908

PATIENT
  Age: 63 Year
  Sex: Male
  Weight: 94 kg

DRUGS (7)
  1. BRILINTA [Suspect]
     Active Substance: TICAGRELOR
     Indication: MYOCARDIAL INFARCTION
     Route: 048
     Dates: start: 201608
  2. PERINEVA [Concomitant]
     Active Substance: PERINDOPRIL ERBUMINE
  3. METOPROLOL. [Concomitant]
     Active Substance: METOPROLOL
  4. CORDINORM [Concomitant]
  5. ATORVASTATIN [Concomitant]
     Active Substance: ATORVASTATIN
  6. NITROSPRAY [Concomitant]
  7. ACETYLSALICYLIC ACID, MAGNESIUM HYDROXIDE [Concomitant]

REACTIONS (3)
  - Hypertensive crisis [Not Recovered/Not Resolved]
  - Chest pain [Not Recovered/Not Resolved]
  - Blood pressure increased [Not Recovered/Not Resolved]

NARRATIVE: CASE EVENT DATE: 20161003
